FAERS Safety Report 9254266 (Version 1)
Quarter: 2013Q2

REPORT INFORMATION
  Report Type: Spontaneous
  Country: SE (occurrence: None)
  Receive Date: 20130419
  Receipt Date: 20130419
  Transmission Date: 20140414
  Serious: Yes (Hospitalization)
  Sender: FDA-Public Use
  Company Number: SE-1197679

PATIENT
  Age: 59 Year
  Sex: Female

DRUGS (1)
  1. MAXIDEX [Suspect]
     Indication: EYE DISORDER

REACTIONS (6)
  - Retinal detachment [None]
  - Vitreous detachment [None]
  - Cataract [None]
  - Corneal disorder [None]
  - Refraction disorder [None]
  - Eyelid ptosis [None]
